FAERS Safety Report 8300576-8 (Version None)
Quarter: 2012Q2

REPORT INFORMATION
  Report Type: 
  Country: None (occurrence: None)
  Receive Date: 20120420
  Receipt Date: 20120402
  Transmission Date: 20120825
  Serious: No
  Sender: FDA-Public Use
  Company Number: US-BAYER-2012-032154

PATIENT
  Sex: Male

DRUGS (1)
  1. MIRENA [Suspect]
     Dosage: UNK

REACTIONS (2)
  - PENIS DISORDER [None]
  - PENILE PAIN [None]
